FAERS Safety Report 8291853-8 (Version None)
Quarter: 2012Q2

REPORT INFORMATION
  Report Type: 
  Country: None (occurrence: None)
  Receive Date: 20120417
  Receipt Date: 20120410
  Transmission Date: 20120825
  Serious: Yes (Hospitalization)
  Sender: FDA-Public Use
  Company Number: US-ELI_LILLY_AND_COMPANY-US201112004307

PATIENT
  Sex: Female
  Weight: 44 kg

DRUGS (6)
  1. FORTEO [Suspect]
     Dosage: 20 UG, QD
     Route: 058
  2. SYNTHROID [Concomitant]
     Indication: THYROID DISORDER
  3. FORTEO [Suspect]
     Indication: OSTEOPOROSIS
     Dosage: 20 UG, QD
     Route: 058
     Dates: start: 20111004
  4. MELOXICAM [Concomitant]
     Indication: ARTHRITIS
  5. VITAMINS NOS [Concomitant]
  6. PROTONIX [Concomitant]
     Indication: DYSPEPSIA

REACTIONS (7)
  - PELVIC FRACTURE [None]
  - DECREASED ACTIVITY [None]
  - UPPER LIMB FRACTURE [None]
  - FALL [None]
  - CRYING [None]
  - DEPRESSION [None]
  - DEPRESSED MOOD [None]
